FAERS Safety Report 8357854-6 (Version None)
Quarter: 2012Q2

REPORT INFORMATION
  Report Type: 
  Country: None (occurrence: None)
  Receive Date: 20120514
  Receipt Date: 20120507
  Transmission Date: 20120825
  Serious: Yes (Hospitalization, Other)
  Sender: FDA-Public Use
  Company Number: US-ABBOTT-12P-163-0933016-00

PATIENT
  Sex: Female
  Weight: 76.272 kg

DRUGS (1)
  1. HUMIRA [Suspect]
     Indication: RHEUMATOID ARTHRITIS
     Dates: start: 20110101, end: 20120301

REACTIONS (7)
  - HEART RATE INCREASED [None]
  - ATRIAL FIBRILLATION [None]
  - MUSCULOSKELETAL PAIN [None]
  - DEHYDRATION [None]
  - DYSARTHRIA [None]
  - LOSS OF CONSCIOUSNESS [None]
  - CEREBROVASCULAR ACCIDENT [None]
